FAERS Safety Report 5554325-7 (Version None)
Quarter: 2007Q4

REPORT INFORMATION
  Report Type: 
  Country: None (occurrence: None)
  Receive Date: 20071213
  Receipt Date: 20071126
  Transmission Date: 20080405
  Serious: Yes (Hospitalization)
  Sender: FDA-Public Use
  Company Number: US-BAYER-US-2007-026508

PATIENT
  Age: 78 Year
  Sex: Female
  Weight: 62 kg

DRUGS (10)
  1. BETASERON [Suspect]
     Indication: RELAPSING-REMITTING MULTIPLE SCLEROSIS
     Dosage: UNIT DOSE: 8 MIU
     Route: 058
     Dates: start: 20030827, end: 20051025
  2. AVONEX [Suspect]
     Indication: RELAPSING-REMITTING MULTIPLE SCLEROSIS
     Dates: start: 20021201, end: 20051001
  3. AVONEX [Suspect]
     Dates: start: 20060501
  4. AVONEX [Concomitant]
     Dates: start: 20061001, end: 20070301
  5. AVONEX [Concomitant]
     Dates: start: 20060501
  6. VITAMINS [Concomitant]
  7. NOTOSYN [Concomitant]
  8. NORVASC [Concomitant]
  9. LORAZEPAM [Concomitant]
  10. ARGENTIN [Concomitant]

REACTIONS (1)
  - RENAL CELL CARCINOMA STAGE UNSPECIFIED [None]
